FAERS Safety Report 18279136 (Version 3)
Quarter: 2020Q4

REPORT INFORMATION
  Report Type: Spontaneous
  Country: US (occurrence: US)
  Receive Date: 20200917
  Receipt Date: 20201120
  Transmission Date: 20210113
  Serious: Yes (Death, Hospitalization, Other)
  Sender: FDA-Public Use
  Company Number: US-JNJFOC-A-US2020-204171

PATIENT
  Age: 72 Year
  Sex: Female
  Weight: 127.12 kg

DRUGS (4)
  1. ADCIRCA [Concomitant]
     Active Substance: TADALAFIL
     Dosage: UNK
  2. OPSUMIT [Suspect]
     Active Substance: MACITENTAN
     Indication: PULMONARY ARTERIAL HYPERTENSION
     Dosage: 10 MG, QD
     Route: 048
  3. AMLODIPINE [Concomitant]
     Active Substance: AMLODIPINE BESYLATE
  4. BOSENTAN. [Concomitant]
     Active Substance: BOSENTAN

REACTIONS (13)
  - Dyspepsia [Unknown]
  - Abdominal distension [Unknown]
  - Dyspnoea [Unknown]
  - Arthritis [Not Recovered/Not Resolved]
  - Arthralgia [Not Recovered/Not Resolved]
  - Genital neoplasm malignant female [Fatal]
  - Fluid retention [Unknown]
  - Pleural effusion [Unknown]
  - Constipation [Not Recovered/Not Resolved]
  - Haemorrhoids [Unknown]
  - Malignant pleural effusion [Fatal]
  - Anorectal discomfort [Unknown]
  - Decreased appetite [Unknown]
